FAERS Safety Report 13527607 (Version 5)
Quarter: 2017Q3

REPORT INFORMATION
  Report Type: Report from Study
  Country: US (occurrence: US)
  Receive Date: 20170509
  Receipt Date: 20170719
  Transmission Date: 20171127
  Serious: Yes (Hospitalization)
  Sender: FDA-Public Use
  Company Number: US-BAYER-2017-080035

PATIENT
  Age: 75 Year
  Sex: Female
  Weight: 65.2 kg

DRUGS (8)
  1. SILDENAFIL. [Suspect]
     Active Substance: SILDENAFIL
     Indication: OVARIAN CANCER
     Dosage: 100 MG, QD
     Route: 048
     Dates: start: 20170330, end: 20170419
  2. CARVEDILOL. [Concomitant]
     Active Substance: CARVEDILOL
     Indication: HYPERTENSION
     Dosage: 12.5 UNK, UNK
  3. SPIRONOLACTONE. [Concomitant]
     Active Substance: SPIRONOLACTONE
     Indication: HYPERTENSION
     Dosage: 25 UNK, UNK
  4. SILDENAFIL. [Suspect]
     Active Substance: SILDENAFIL
     Indication: OVARIAN CANCER
     Dosage: 100 MG, QD
     Route: 048
     Dates: start: 20170215, end: 20170222
  5. REGORAFENIB [Suspect]
     Active Substance: REGORAFENIB
     Indication: OVARIAN CANCER
     Dosage: 40 MG, QD
     Route: 048
     Dates: start: 20170330, end: 20170419
  6. CELEXA [Concomitant]
     Active Substance: CITALOPRAM HYDROBROMIDE
     Indication: DEPRESSION
     Dosage: 20 UNK, UNK
  7. REGORAFENIB [Suspect]
     Active Substance: REGORAFENIB
     Indication: OVARIAN CANCER
     Dosage: 160 MG, QD
     Route: 048
     Dates: start: 20170215, end: 20170228
  8. LOSARTAN. [Concomitant]
     Active Substance: LOSARTAN
     Indication: HYPERTENSION
     Dosage: 100 UNK, UNK

REACTIONS (18)
  - Hypertension [None]
  - Headache [None]
  - Ischaemic cerebral infarction [None]
  - Hyponatraemia [Recovered/Resolved]
  - Facial paralysis [None]
  - Hypertensive emergency [Recovered/Resolved]
  - Speech disorder [None]
  - Cerebral small vessel ischaemic disease [None]
  - Muscular weakness [None]
  - Neurologic neglect syndrome [None]
  - Agitation [None]
  - Hemiparesis [None]
  - Mental status changes [None]
  - Unresponsive to stimuli [None]
  - Coordination abnormal [None]
  - Hemianaesthesia [None]
  - Leukoencephalopathy [None]
  - Cognitive disorder [None]

NARRATIVE: CASE EVENT DATE: 20170301
